FAERS Safety Report 23315948 (Version 2)
Quarter: 2024Q1

REPORT INFORMATION
  Report Type: Report from Study
  Country: CN (occurrence: CN)
  Receive Date: 20231219
  Receipt Date: 20240117
  Transmission Date: 20240410
  Serious: No
  Sender: FDA-Public Use
  Company Number: CN-PFIZER INC-PV202300203884

PATIENT
  Age: 81 Year
  Sex: Female

DRUGS (17)
  1. NIRMATRELVIR\RITONAVIR [Suspect]
     Active Substance: NIRMATRELVIR\RITONAVIR
     Indication: COVID-19
     Dosage: [NIRMATRELVIR 300MG]/[RITONAVIR 100MG], Q12H
     Route: 048
     Dates: start: 20220502, end: 20220507
  2. NIRMATRELVIR\RITONAVIR [Suspect]
     Active Substance: NIRMATRELVIR\RITONAVIR
     Dosage: [NIRMATRELVIR 300MG]/[RITONAVIR 100MG], Q12H
     Route: 048
     Dates: start: 20220514, end: 20220519
  3. VITAMIN B6 [Concomitant]
     Active Substance: PYRIDOXINE HYDROCHLORIDE
     Indication: Nutritional supplementation
     Dosage: UNK
     Route: 042
     Dates: start: 20220429, end: 20220429
  4. VITAMIN C [Concomitant]
     Active Substance: ASCORBIC ACID
     Indication: Nutritional supplementation
     Dosage: UNK
     Route: 042
     Dates: start: 20220429, end: 20220429
  5. PIPERACILLIN AND TAZOBACTAM [Concomitant]
     Active Substance: PIPERACILLIN SODIUM\TAZOBACTAM SODIUM
     Indication: Infection prophylaxis
     Dosage: UNK
     Route: 042
     Dates: start: 20220429, end: 20220504
  6. LEVOFLOXACIN [Concomitant]
     Active Substance: LEVOFLOXACIN
     Indication: Infection prophylaxis
     Dosage: UNK
     Route: 042
     Dates: start: 20220429, end: 20220509
  7. HEPARIN SODIUM [Concomitant]
     Active Substance: HEPARIN SODIUM
     Indication: Anticoagulant therapy
     Dosage: UNK
     Route: 058
     Dates: start: 20220429, end: 20220504
  8. OMEPRAZOLE SODIUM [Concomitant]
     Active Substance: OMEPRAZOLE SODIUM
     Indication: Gastrointestinal disorder prophylaxis
     Dosage: UNK
     Route: 042
     Dates: start: 20220429, end: 20220513
  9. COMPOUND AMINO ACID INJECTION (14AA) [Concomitant]
     Indication: Nutritional supplementation
     Dosage: UNK
     Route: 042
     Dates: start: 20220429, end: 20220504
  10. POTASSIUM CHLORIDE [Concomitant]
     Active Substance: POTASSIUM CHLORIDE
     Indication: Mineral supplementation
     Dosage: UNK, NASOGASTRIC
     Dates: start: 20220504, end: 20220506
  11. POTASSIUM CHLORIDE [Concomitant]
     Active Substance: POTASSIUM CHLORIDE
     Dosage: UNK, NASOGASTRIC
     Dates: start: 20220506, end: 20220513
  12. BISOPROLOL FUMARATE [Concomitant]
     Active Substance: BISOPROLOL FUMARATE
     Indication: Heart rate abnormal
     Dosage: UNK, NASOGASTRIC
     Dates: start: 20220504, end: 20220509
  13. CEFOPERAZONE SODIUM\SULBACTAM SODIUM [Concomitant]
     Active Substance: CEFOPERAZONE SODIUM\SULBACTAM SODIUM
     Indication: Infection prophylaxis
     Dosage: UNK
     Route: 042
     Dates: start: 20220504, end: 20220505
  14. MEROPENEM [Concomitant]
     Active Substance: MEROPENEM
     Indication: Infection prophylaxis
     Dosage: UNK
     Route: 042
     Dates: start: 20220505, end: 20220509
  15. THYMUS [THYMUS SPP.] [Concomitant]
     Indication: Immunodeficiency
     Dosage: UNK THYMUS METHOD
     Route: 058
     Dates: start: 20220506, end: 20220506
  16. CEFEPIME HYDROCHLORIDE [Concomitant]
     Active Substance: CEFEPIME HYDROCHLORIDE
     Indication: Infection prophylaxis
     Dosage: UNK
     Route: 042
     Dates: start: 20220429, end: 20220429
  17. ENOXAPARIN SODIUM [Concomitant]
     Active Substance: ENOXAPARIN SODIUM
     Indication: Anticoagulant therapy
     Dosage: UNK
     Route: 058
     Dates: start: 20220504, end: 20220512

REACTIONS (1)
  - Overdose [Unknown]

NARRATIVE: CASE EVENT DATE: 20220514
